FAERS Safety Report 10172008 (Version 1)
Quarter: 2014Q2

REPORT INFORMATION
  Report Type: Spontaneous
  Country: US (occurrence: US)
  Receive Date: 20140515
  Receipt Date: 20140515
  Transmission Date: 20141212
  Serious: Yes (Death, Other)
  Sender: FDA-Public Use
  Company Number: US-MPIJNJ-2014MPI001383

PATIENT
  Sex: Male
  Weight: 88 kg

DRUGS (13)
  1. VELCADE [Suspect]
     Indication: MANTLE CELL LYMPHOMA
  2. ALBUTEROL                          /00139501/ [Concomitant]
  3. BUDESONIDE [Concomitant]
  4. CITALOPRAM [Concomitant]
  5. DIAZEPAM [Concomitant]
  6. DIPHENHYDRAMINE [Concomitant]
  7. GABAPENTIN [Concomitant]
  8. HYDROXYZINE PAMOATE [Concomitant]
  9. LEVOFLOXACIN [Concomitant]
  10. OXYCODONE HCL [Concomitant]
  11. PROCHLORPERAZINE MALEATE [Concomitant]
  12. VITAMIN D3 [Concomitant]
  13. RANITIDINE HCL [Concomitant]

REACTIONS (2)
  - Acute leukaemia [Fatal]
  - Rash [Unknown]
